FAERS Safety Report 6822214-3 (Version None)
Quarter: 2010Q3

REPORT INFORMATION
  Report Type: 
  Country: None (occurrence: None)
  Receive Date: 20100707
  Receipt Date: 20100707
  Transmission Date: 20110219
  Serious: Yes (Hospitalization)
  Sender: FDA-Public Use
  Company Number: None

PATIENT
  Sex: Female
  Weight: 9 kg

DRUGS (4)
  1. VINCRISTINE SULFATE [Suspect]
     Dosage: .5 MG
     Dates: end: 20100505
  2. DEXAMETHASONE [Suspect]
     Dosage: 56 MG
     Dates: end: 20100506
  3. MERCAPTOPURINE [Suspect]
     Dosage: 525 MG
     Dates: end: 20100428
  4. METHOTREXATE [Suspect]
     Dosage: 26.75 MG
     Dates: end: 20100428

REACTIONS (15)
  - BACTERAEMIA [None]
  - CEREBRAL ATROPHY [None]
  - DEMYELINATING POLYNEUROPATHY [None]
  - DRUG TOXICITY [None]
  - HEMIPARESIS [None]
  - HYPERMETABOLISM [None]
  - INFLUENZA [None]
  - INFUSION SITE EXTRAVASATION [None]
  - IRRITABILITY [None]
  - MENTAL IMPAIRMENT [None]
  - MENTAL STATUS CHANGES [None]
  - PNEUMONIA [None]
  - POST HERPETIC NEURALGIA [None]
  - PYREXIA [None]
  - RASH VESICULAR [None]
